APPROVED DRUG PRODUCT: NYSTATIN AND TRIAMCINOLONE ACETONIDE
Active Ingredient: NYSTATIN; TRIAMCINOLONE ACETONIDE
Strength: 100,000 UNITS/GM;0.1%
Dosage Form/Route: CREAM;TOPICAL
Application: A062599 | Product #001 | TE Code: AT
Applicant: FOUGERA PHARMACEUTICALS INC
Approved: Oct 8, 1985 | RLD: No | RS: No | Type: RX